FAERS Safety Report 19955639 (Version 3)
Quarter: 2021Q4

REPORT INFORMATION
  Report Type: Spontaneous
  Country: FR (occurrence: None)
  Receive Date: 20211013
  Receipt Date: 20211229
  Transmission Date: 20220303
  Serious: Yes (Hospitalization)
  Sender: FDA-Public Use
  Company Number: FR-ROCHE-2930493

PATIENT
  Sex: Female
  Weight: 82 kg

DRUGS (1)
  1. OCREVUS [Suspect]
     Active Substance: OCRELIZUMAB
     Indication: Relapsing-remitting multiple sclerosis
     Dosage: VACCINATED WITH 2 DOSES
     Route: 042
     Dates: start: 20200316, end: 20210920

REACTIONS (1)
  - COVID-19 pneumonia [Recovered/Resolved]
